FAERS Safety Report 6202757-6 (Version None)
Quarter: 2009Q2

REPORT INFORMATION
  Report Type: 
  Country: None (occurrence: None)
  Receive Date: 20090526
  Receipt Date: 20090526
  Transmission Date: 20091009
  Serious: Yes (Other)
  Sender: FDA-Public Use
  Company Number: US-PFIZER INC-2009197037

PATIENT
  Sex: Female

DRUGS (2)
  1. CELEBREX [Suspect]
  2. WARFARIN [Concomitant]

REACTIONS (2)
  - HAEMARTHROSIS [None]
  - INTERNATIONAL NORMALISED RATIO INCREASED [None]
